FAERS Safety Report 5398392-2 (Version None)
Quarter: 2007Q3

REPORT INFORMATION
  Report Type: 
  Country: None (occurrence: None)
  Receive Date: 20070726
  Receipt Date: 20070419
  Transmission Date: 20080115
  Serious: No
  Sender: FDA-Public Use
  Company Number: US-AMGEN-KDL220668

PATIENT
  Sex: Female
  Weight: 80 kg

DRUGS (2)
  1. PROCRIT [Suspect]
     Indication: PREOPERATIVE CARE
     Dates: start: 20070413
  2. HEPARIN [Concomitant]

REACTIONS (1)
  - DRUG INEFFECTIVE [None]
